FAERS Safety Report 15986435 (Version 1)
Quarter: 2019Q1

REPORT INFORMATION
  Report Type: Spontaneous
  Country: TN (occurrence: TN)
  Receive Date: 20190220
  Receipt Date: 20190220
  Transmission Date: 20190418
  Serious: Yes (Other)
  Sender: FDA-Public Use
  Company Number: TN-GLAXOSMITHKLINE-TN2019GSK030570

PATIENT
  Age: 55 Year
  Sex: Female

DRUGS (2)
  1. ALLERGICA (CETIRIZINE) [Concomitant]
     Indication: RHINITIS ALLERGIC
     Dosage: UNK
     Route: 048
  2. FLIXONASE NASAL SPRAY [Suspect]
     Active Substance: FLUTICASONE PROPIONATE
     Indication: RHINITIS ALLERGIC
     Dosage: UNK
     Route: 045

REACTIONS (3)
  - Osteonecrosis [Recovered/Resolved with Sequelae]
  - Arthralgia [Unknown]
  - Erectile dysfunction [Unknown]
